FAERS Safety Report 8363668-3 (Version None)
Quarter: 2012Q1

REPORT INFORMATION
  Report Type: 
  Country: None (occurrence: None)
  Receive Date: 20120323
  Receipt Date: 20110412
  Transmission Date: 20120608
  Serious: Yes (Disabling)
  Sender: FDA-Public Use
  Company Number: 163-21880-11041556

PATIENT
  Age: 64 Year
  Sex: Male
  Weight: 99.7913 kg

DRUGS (10)
  1. ENOXAPARIN SODIUM [Concomitant]
  2. XANAX [Concomitant]
  3. ALLOPURINOL [Concomitant]
  4. CALCIUM CARBONATE [Concomitant]
  5. MELOXICAM [Concomitant]
  6. SIMVASTATIN [Concomitant]
  7. DEXAMETHASONE [Concomitant]
  8. REVLIMID [Suspect]
     Indication: MULTIPLE MYELOMA
     Dosage: 25 MG, X14 DAYS, PO
     Route: 048
     Dates: start: 20101217
  9. CITALOPRAM HYDROBROMIDE [Concomitant]
  10. OXYCODONE HCL [Concomitant]

REACTIONS (1)
  - HYPOAESTHESIA [None]
